FAERS Safety Report 15016515 (Version 2)
Quarter: 2018Q3

REPORT INFORMATION
  Report Type: Spontaneous
  Country: CN (occurrence: CN)
  Receive Date: 20180615
  Receipt Date: 20180704
  Transmission Date: 20181010
  Serious: Yes (Other)
  Sender: FDA-Public Use
  Company Number: CN-ROCHE-2141168

PATIENT
  Age: 65 Year
  Sex: Female

DRUGS (7)
  1. AVASTIN [Suspect]
     Active Substance: BEVACIZUMAB
     Indication: LUNG NEOPLASM MALIGNANT
     Route: 065
     Dates: start: 20180503
  2. AVASTIN [Suspect]
     Active Substance: BEVACIZUMAB
     Indication: INTESTINAL ADENOCARCINOMA
  3. PEMETREXED. [Suspect]
     Active Substance: PEMETREXED
     Indication: LUNG NEOPLASM MALIGNANT
     Route: 065
     Dates: start: 2018
  4. PEMETREXED. [Suspect]
     Active Substance: PEMETREXED
     Indication: INTESTINAL ADENOCARCINOMA
  5. FLUOROURACIL. [Concomitant]
     Active Substance: FLUOROURACIL
  6. OXALIPLATIN. [Concomitant]
     Active Substance: OXALIPLATIN
  7. PACLITAXEL. [Concomitant]
     Active Substance: PACLITAXEL

REACTIONS (2)
  - Haematuria [Recovering/Resolving]
  - Proteinuria [Recovering/Resolving]
